FAERS Safety Report 6386130-6 (Version None)
Quarter: 2009Q4

REPORT INFORMATION
  Report Type: 
  Country: None (occurrence: None)
  Receive Date: 20091002
  Receipt Date: 20090128
  Transmission Date: 20100525
  Serious: No
  Sender: FDA-Public Use
  Company Number: US-ASTRAZENECA-2008UW26976

PATIENT
  Age: 58 Year
  Sex: Female
  Weight: 130.2 kg

DRUGS (10)
  1. ARIMIDEX [Suspect]
     Indication: BREAST CANCER
     Dosage: I MG
     Route: 048
     Dates: start: 20080901
  2. LAMICTAL [Concomitant]
     Dosage: 200 MG, DAILY
  3. CYMBALTA [Concomitant]
  4. NEXIUM [Concomitant]
  5. METFORMIN [Concomitant]
  6. ATENOLOL [Concomitant]
  7. LISINOPRIL AND HYDROCHLOROTHIAZIDE [Concomitant]
     Dosage: 20/12.5 MG, DAILY
  8. CRESTOR [Concomitant]
     Route: 048
  9. LORAZEPAM [Concomitant]
     Dosage: PRN
  10. VITAMIN D [Concomitant]

REACTIONS (3)
  - HOT FLUSH [None]
  - MOOD SWINGS [None]
  - PAIN IN EXTREMITY [None]
